FAERS Safety Report 11951470 (Version 3)
Quarter: 2016Q1

REPORT INFORMATION
  Report Type: Spontaneous
  Country: JP (occurrence: JP)
  Receive Date: 20160126
  Receipt Date: 20160309
  Transmission Date: 20160526
  Serious: Yes (Hospitalization, Other)
  Sender: FDA-Public Use
  Company Number: JP-NOVOPROD-476104

PATIENT
  Age: 24 Year
  Sex: Male
  Weight: 54 kg

DRUGS (1)
  1. NOVORAPID [Suspect]
     Active Substance: INSULIN ASPART
     Indication: TYPE 1 DIABETES MELLITUS
     Dosage: 69 IU, QD (27IU IN MORNING AND 42IU IN EVENING)
     Route: 058
     Dates: start: 20101220, end: 20150320

REACTIONS (6)
  - Hypoglycaemic coma [Recovered/Resolved]
  - Hypoglycaemic seizure [Recovered/Resolved]
  - Inappropriate schedule of drug administration [Unknown]
  - Hypoglycaemia [Unknown]
  - Lumbar vertebral fracture [Unknown]
  - Hypoglycaemic coma [Recovered/Resolved]

NARRATIVE: CASE EVENT DATE: 20141122
